FAERS Safety Report 9771835 (Version 1)
Quarter: 2013Q4

REPORT INFORMATION
  Report Type: Spontaneous
  Country: US (occurrence: US)
  Receive Date: 20131219
  Receipt Date: 20131219
  Transmission Date: 20140711
  Serious: No
  Sender: FDA-Public Use
  Company Number: US-JNJFOC-20131202986

PATIENT
  Age: 37 Year
  Sex: Female
  Weight: 123.38 kg

DRUGS (6)
  1. DURAGESIC [Suspect]
     Indication: PAIN
     Route: 062
     Dates: start: 201311, end: 20131202
  2. DURAGESIC [Suspect]
     Indication: PAIN
     Route: 062
     Dates: start: 20131203
  3. OXYCODONE [Concomitant]
     Indication: PAIN
     Dosage: FOR 6 YEARS
     Route: 065
  4. ULTRAM [Concomitant]
     Indication: PAIN
     Dosage: 1-2 TABLETS 3 TIMES A DAY
     Route: 048
     Dates: start: 2012
  5. AMLODIPINE [Concomitant]
     Indication: HYPERTENSION
     Dosage: FOR 5 YEARS
     Route: 048
  6. PAXIL [Concomitant]
     Indication: DEPRESSION
     Dosage: FOR 7 YEARS
     Route: 048

REACTIONS (5)
  - Drug ineffective [Unknown]
  - Wrong technique in drug usage process [Unknown]
  - Product adhesion issue [Unknown]
  - Wrong technique in drug usage process [Unknown]
  - Wrong technique in drug usage process [Unknown]
